FAERS Safety Report 5486115-8 (Version None)
Quarter: 2007Q4

REPORT INFORMATION
  Report Type: 
  Country: None (occurrence: None)
  Receive Date: 20071012
  Receipt Date: 20071008
  Transmission Date: 20080405
  Serious: Yes (Death, Life-Threatening)
  Sender: FDA-Public Use
  Company Number: DIWVM-07-0824

PATIENT
  Sex: Female

DRUGS (4)
  1. DIPRIVAN [Suspect]
     Indication: SEDATION
     Dosage: 2.5 ML
     Dates: start: 20070921, end: 20070921
  2. NITROGLYCERIN [Concomitant]
  3. ACTOS [Concomitant]
  4. AVANDIA [Concomitant]

REACTIONS (4)
  - CARDIAC ARREST [None]
  - HYPOTENSION [None]
  - PROCEDURAL COMPLICATION [None]
  - RENAL IMPAIRMENT [None]
